FAERS Safety Report 24206326 (Version 2)
Quarter: 2024Q3

REPORT INFORMATION
  Report Type: Spontaneous
  Country: FR (occurrence: FR)
  Receive Date: 20240813
  Receipt Date: 20240827
  Transmission Date: 20241016
  Serious: Yes (Hospitalization)
  Sender: MYLAN
  Company Number: None

PATIENT
  Age: 69 Year
  Sex: Male
  Weight: 106 kg

DRUGS (3)
  1. OXALIPLATIN [Suspect]
     Active Substance: OXALIPLATIN
     Indication: Oesophageal carcinoma
     Dosage: 1 DOSAGE FORM, 1 CYCLE
     Route: 042
     Dates: start: 20240201, end: 20240326
  2. FLUOROURACIL [Suspect]
     Active Substance: FLUOROURACIL
     Indication: Oesophageal carcinoma
     Dosage: 1 DOSAGE FORM, 1 CYCLE
     Route: 042
     Dates: start: 20240201, end: 20240326
  3. DOCETAXEL [Suspect]
     Active Substance: DOCETAXEL\DOCETAXEL ANHYDROUS
     Indication: Oesophageal carcinoma
     Dosage: 1 DOSAGE FORM, 1 CYCLE
     Route: 042
     Dates: start: 20240201, end: 20240201

REACTIONS (2)
  - Shock haemorrhagic [Recovered/Resolved]
  - Gastrointestinal ulcer [Recovering/Resolving]

NARRATIVE: CASE EVENT DATE: 20240209
